FAERS Safety Report 6326583-2 (Version None)
Quarter: 2009Q3

REPORT INFORMATION
  Report Type: 
  Country: None (occurrence: None)
  Receive Date: 20090825
  Receipt Date: 20070720
  Transmission Date: 20100115
  Serious: Yes (Other)
  Sender: FDA-Public Use
  Company Number: US-ASTRAZENECA-2007UW06019

PATIENT
  Age: 14713 Day
  Sex: Male
  Weight: 137 kg

DRUGS (10)
  1. SEROQUEL [Suspect]
     Indication: DEPRESSION
     Route: 048
     Dates: start: 20000701
  2. SEROQUEL [Suspect]
     Indication: SCHIZOPHRENIA
     Route: 048
     Dates: start: 20000701
  3. SEROQUEL [Suspect]
     Route: 048
     Dates: start: 20011122
  4. SEROQUEL [Suspect]
     Route: 048
     Dates: start: 20011122
  5. RISPERDAL [Suspect]
     Dates: start: 19990401, end: 20030801
  6. DEPAKOTE [Concomitant]
     Route: 048
     Dates: start: 20011122
  7. ATENOLOL [Concomitant]
     Route: 048
     Dates: start: 20000605
  8. LIPITOR [Concomitant]
     Route: 048
     Dates: start: 20011122
  9. WELLBUTRIN [Concomitant]
     Route: 048
     Dates: start: 20060120
  10. AVANDIA [Concomitant]
     Route: 048
     Dates: start: 20060120

REACTIONS (7)
  - BLOOD GLUCOSE INCREASED [None]
  - DIABETES MELLITUS INADEQUATE CONTROL [None]
  - DIABETIC KETOACIDOSIS [None]
  - DIABETIC NEPHROPATHY [None]
  - DIABETIC NEUROPATHY [None]
  - NEUROPATHY PERIPHERAL [None]
  - TYPE 2 DIABETES MELLITUS [None]
